FAERS Safety Report 6102132-9 (Version None)
Quarter: 2009Q1

REPORT INFORMATION
  Report Type: 
  Country: None (occurrence: None)
  Receive Date: 20090304
  Receipt Date: 20090225
  Transmission Date: 20090719
  Serious: No
  Sender: FDA-Public Use
  Company Number: JP-MERCK-0902USA03034

PATIENT
  Age: 76 Year
  Sex: Female

DRUGS (4)
  1. FOSAMAX [Suspect]
     Indication: OSTEOPOROSIS
     Route: 048
     Dates: start: 20090208, end: 20090208
  2. ONEALFA [Concomitant]
     Indication: OSTEOPOROSIS
     Route: 048
     Dates: start: 20080808
  3. CYANOCOBALAMIN [Concomitant]
     Indication: OSTEOPOROSIS
     Route: 048
     Dates: start: 20080808
  4. OLMETEC [Concomitant]
     Indication: HYPERTENSION
     Route: 048

REACTIONS (3)
  - BACK PAIN [None]
  - MYALGIA [None]
  - SLEEP DISORDER [None]
